FAERS Safety Report 23229724 (Version 1)
Quarter: 2023Q4

REPORT INFORMATION
  Report Type: Spontaneous
  Country: US (occurrence: None)
  Receive Date: 20231127
  Receipt Date: 20231127
  Transmission Date: 20240110
  Serious: Yes (Other)
  Sender: FDA-Public Use
  Company Number: US-ROCHE-3212028

PATIENT
  Age: 78 Year
  Sex: Female

DRUGS (1)
  1. LUCENTIS [Suspect]
     Active Substance: RANIBIZUMAB
     Indication: Neovascular age-related macular degeneration
     Dosage: EVERY ^6-8 WEEKS^
     Route: 050
     Dates: start: 2019

REACTIONS (4)
  - Vision blurred [Recovering/Resolving]
  - Off label use [Unknown]
  - Headache [Recovering/Resolving]
  - Paranasal sinus hypersecretion [Not Recovered/Not Resolved]
